FAERS Safety Report 15744235 (Version 1)
Quarter: 2018Q4

REPORT INFORMATION
  Report Type: Spontaneous
  Country: US (occurrence: US)
  Receive Date: 20181220
  Receipt Date: 20181220
  Transmission Date: 20190205
  Serious: Yes (Other)
  Sender: FDA-Public Use
  Company Number: US-BRISTOL-MYERS SQUIBB COMPANY-BMS-2018-117730

PATIENT
  Age: 58 Year
  Sex: Female

DRUGS (1)
  1. OPDIVO [Suspect]
     Active Substance: NIVOLUMAB
     Indication: MALIGNANT MELANOMA
     Dosage: 20 ABSENT, Q2WK
     Route: 065
     Dates: start: 20171228, end: 20181016

REACTIONS (6)
  - Inflammation [Unknown]
  - Colitis [Recovering/Resolving]
  - Weight decreased [Unknown]
  - Muscular weakness [Unknown]
  - Bladder pain [Unknown]
  - Lipase increased [Recovered/Resolved]

NARRATIVE: CASE EVENT DATE: 20180821
